FAERS Safety Report 4853451-5 (Version None)
Quarter: 2005Q4

REPORT INFORMATION
  Report Type: 
  Country: None (occurrence: None)
  Receive Date: 20051130
  Receipt Date: 20051012
  Transmission Date: 20060501
  Serious: No
  Sender: FDA-Public Use
  Company Number: WAES 0510USA06897

PATIENT
  Age: 73 Year
  Sex: Female

DRUGS (5)
  1. ZETIA [Suspect]
     Indication: BLOOD CHOLESTEROL INCREASED
     Dosage: 10 MG/DAILY/PO
     Route: 048
     Dates: start: 20030101
  2. HYDRODIURIL [Concomitant]
  3. CLONIDINE [Concomitant]
  4. DILTIAZEM HYDROCHLORIDE [Concomitant]
  5. METOPROLOL [Concomitant]

REACTIONS (1)
  - MUSCLE SPASMS [None]
